FAERS Safety Report 11504675 (Version 1)
Quarter: 2015Q3

REPORT INFORMATION
  Report Type: Spontaneous
  Country: US (occurrence: US)
  Receive Date: 20150915
  Receipt Date: 20150915
  Transmission Date: 20151125
  Serious: No
  Sender: FDA-Public Use
  Company Number: US-ROCHE-798933

PATIENT
  Sex: Female

DRUGS (2)
  1. RIBASPHERE RIBAPAK [Suspect]
     Active Substance: RIBAVIRIN
     Indication: HEPATITIS C
     Dosage: DIVIDED DOSES.
     Route: 065
  2. PEGASYS [Suspect]
     Active Substance: PEGINTERFERON ALFA-2A
     Indication: HEPATITIS C
     Route: 065

REACTIONS (12)
  - White blood cell count decreased [Unknown]
  - Crying [Unknown]
  - Frustration [Unknown]
  - Insomnia [Unknown]
  - Tachyphrenia [Unknown]
  - Dry eye [Unknown]
  - Cognitive disorder [Unknown]
  - Rheumatoid arthritis [Unknown]
  - White blood cell disorder [Unknown]
  - Neutrophil count abnormal [Unknown]
  - Hypersensitivity [Unknown]
  - Anxiety [Unknown]
